FAERS Safety Report 14987221 (Version 1)
Quarter: 2018Q2

REPORT INFORMATION
  Report Type: Spontaneous
  Country: ES (occurrence: ES)
  Receive Date: 20180608
  Receipt Date: 20180608
  Transmission Date: 20180711
  Serious: Yes (Hospitalization, Other)
  Sender: FDA-Public Use
  Company Number: ES-BRISTOL-MYERS SQUIBB COMPANY-BMS-2018-051094

PATIENT
  Age: 39 Year
  Sex: Female

DRUGS (2)
  1. CRIZOTINIB [Suspect]
     Active Substance: CRIZOTINIB
     Indication: LUNG NEOPLASM
     Route: 065
  2. NIVOLUMAB [Suspect]
     Active Substance: NIVOLUMAB
     Indication: LUNG ADENOCARCINOMA
     Dosage: UNAVAILABLE
     Route: 065
     Dates: start: 201603, end: 20161128

REACTIONS (14)
  - Pancreatic failure [Unknown]
  - Pulmonary embolism [Unknown]
  - Intervertebral disc protrusion [Unknown]
  - Diarrhoea [Recovering/Resolving]
  - Salpingitis [Unknown]
  - Pleural effusion [Unknown]
  - Discomfort [Unknown]
  - Colitis [Unknown]
  - Fibula fracture [Unknown]
  - Scoliosis [Unknown]
  - Intervertebral disc disorder [Unknown]
  - Neoplasm [Unknown]
  - Fall [Unknown]
  - Malignant neoplasm progression [Unknown]

NARRATIVE: CASE EVENT DATE: 201612
